FAERS Safety Report 8510316-5 (Version None)
Quarter: 2012Q3

REPORT INFORMATION
  Report Type: 
  Country: None (occurrence: None)
  Receive Date: 20120713
  Receipt Date: 20120612
  Transmission Date: 20120928
  Serious: Yes (Hospitalization, Other)
  Sender: FDA-Public Use
  Company Number: CHPA2012GB010384

PATIENT
  Age: 36 Year
  Sex: Female

DRUGS (17)
  1. FERROUS SULFATE TAB [Suspect]
     Dosage: 200 MG, BID
  2. FUROSEMIDE [Concomitant]
  3. ABILIFY [Concomitant]
  4. LACTULOSE [Suspect]
     Dosage: 10 ML, UNK
  5. ZOPICLONE [Concomitant]
     Dosage: UNK DF, QD
  6. CLOZARIL [Suspect]
     Indication: SCHIZOPHRENIA
     Dosage: UNK
     Route: 048
     Dates: start: 20060605, end: 20060713
  7. PERINDOPRIL ERBUMINE [Suspect]
     Dosage: 2 MG, QD
     Route: 048
  8. ATORVASTATIN [Concomitant]
  9. DIAZEPAM [Suspect]
  10. FOLIC ACID [Suspect]
     Dosage: 5 MG, QD
     Route: 048
  11. CLOZARIL [Suspect]
     Dosage: 250 MG, UNK
     Route: 048
     Dates: start: 20080519
  12. TRIMETHOPRIM [Suspect]
     Indication: URINARY TRACT INFECTION
  13. CLOZARIL [Suspect]
     Dosage: 250 MG, QD
     Route: 048
     Dates: start: 20050501, end: 20050519
  14. RAMIPRIL [Concomitant]
  15. CLOZARIL [Suspect]
     Dosage: UNK
     Route: 048
     Dates: start: 20080605
  16. LANSOPRAZOLE [Suspect]
     Dosage: 30 MG EVERY DAY
     Route: 048
  17. BENDROFLUAZIDE [Concomitant]
     Indication: HYPERTENSION

REACTIONS (21)
  - WHITE BLOOD CELL COUNT INCREASED [None]
  - ABDOMINAL TENDERNESS [None]
  - BODY MASS INDEX DECREASED [None]
  - MEAN CELL VOLUME DECREASED [None]
  - PHYSICAL ASSAULT [None]
  - CONSTIPATION [None]
  - SINUS TACHYCARDIA [None]
  - STAPHYLOCOCCAL INFECTION [None]
  - IRON DEFICIENCY ANAEMIA [None]
  - MALAISE [None]
  - URINARY TRACT INFECTION [None]
  - WHITE BLOOD CELL DISORDER [None]
  - DIABETES MELLITUS [None]
  - HIATUS HERNIA [None]
  - PYREXIA [None]
  - HYPERTENSION [None]
  - MONOCYTE COUNT INCREASED [None]
  - NEUTROPHIL COUNT INCREASED [None]
  - SKIN DISORDER [None]
  - CARDIAC MURMUR [None]
  - THROMBOCYTOSIS [None]
